FAERS Safety Report 25408505 (Version 1)
Quarter: 2025Q2

REPORT INFORMATION
  Report Type: Spontaneous
  Country: JP (occurrence: JP)
  Receive Date: 20250606
  Receipt Date: 20250606
  Transmission Date: 20250717
  Serious: Yes (Other)
  Sender: GILEAD
  Company Number: JP-GILEAD-2025-0715905

PATIENT
  Age: 7 Decade
  Sex: Male

DRUGS (1)
  1. YESCARTA [Suspect]
     Active Substance: AXICABTAGENE CILOLEUCEL
     Indication: Diffuse large B-cell lymphoma recurrent
     Route: 041

REACTIONS (5)
  - Immune effector cell-associated neurotoxicity syndrome [Recovering/Resolving]
  - Autonomic neuropathy [Recovering/Resolving]
  - Human herpesvirus 6 encephalitis [Unknown]
  - Mental impairment [Not Recovered/Not Resolved]
  - Disseminated cryptococcosis [Unknown]
